FAERS Safety Report 13192871 (Version 2)
Quarter: 2017Q1

REPORT INFORMATION
  Report Type: Spontaneous
  Country: IE (occurrence: IE)
  Receive Date: 20170207
  Receipt Date: 20170220
  Transmission Date: 20170428
  Serious: Yes (Other)
  Sender: FDA-Public Use
  Company Number: IE-GLAXOSMITHKLINE-IE2017013592

PATIENT
  Age: 74 Year
  Sex: Male
  Weight: 105 kg

DRUGS (4)
  1. INCRUSE ELLIPTA [Suspect]
     Active Substance: UMECLIDINIUM BROMIDE
     Indication: CHRONIC OBSTRUCTIVE PULMONARY DISEASE
     Dosage: 1 DF, QD,ONE INHALATION DAILY IN MORNING
     Route: 055
     Dates: start: 20161109, end: 20170113
  2. COMBIVENT [Concomitant]
     Active Substance: ALBUTEROL SULFATE\IPRATROPIUM BROMIDE
     Indication: CHRONIC OBSTRUCTIVE PULMONARY DISEASE
     Dosage: PRN UP TO 3 TIMES DAILY
     Route: 055
     Dates: start: 20170109
  3. PREDNISOLONE. [Concomitant]
     Active Substance: PREDNISOLONE
     Indication: CHRONIC OBSTRUCTIVE PULMONARY DISEASE
     Dosage: 30 MG
     Route: 065
     Dates: start: 20170109, end: 20170114
  4. SALAMOL EASI-BREATHE CFC-FREE INHALER [Concomitant]
     Indication: PROPHYLAXIS AGAINST BRONCHOSPASM
     Dosage: 100 MCG PRN UP TO 4 TIMES DAILY
     Route: 055
     Dates: start: 20161108

REACTIONS (6)
  - Nausea [Recovered/Resolved]
  - Swelling face [Recovered/Resolved]
  - Eye swelling [Recovered/Resolved]
  - Chronic obstructive pulmonary disease [Recovered/Resolved]
  - Feeling abnormal [Recovered/Resolved]
  - Halo vision [Recovered/Resolved]

NARRATIVE: CASE EVENT DATE: 20170109
